FAERS Safety Report 4435056-3 (Version None)
Quarter: 2004Q3

REPORT INFORMATION
  Report Type: 
  Country: None (occurrence: None)
  Receive Date: 20040827
  Receipt Date: 20040820
  Transmission Date: 20050211
  Serious: Yes (Other)
  Sender: FDA-Public Use
  Company Number: US-JNJFOC-20040807705

PATIENT
  Sex: Male
  Weight: 96.16 kg

DRUGS (7)
  1. TYLENOL W/ CODEINE NO. 3 [Suspect]
     Dosage: 1/2 TO 1 TAB BID
     Route: 049
  2. ATENOLOL [Concomitant]
  3. PLAVIX [Concomitant]
  4. ASPIRIN [Concomitant]
  5. ZOCOR [Concomitant]
  6. CEFIA [Concomitant]
  7. FLONASE [Concomitant]

REACTIONS (5)
  - FATIGUE [None]
  - HYPERHIDROSIS [None]
  - OEDEMA PERIPHERAL [None]
  - PALPITATIONS [None]
  - SOMNOLENCE [None]
